FAERS Safety Report 16182689 (Version 1)
Quarter: 2019Q2

REPORT INFORMATION
  Report Type: Report from Study
  Country: None (occurrence: FR)
  Receive Date: 20190411
  Receipt Date: 20190411
  Transmission Date: 20190711
  Serious: Yes (Hospitalization)
  Sender: FDA-Public Use
  Company Number: FR-ABBVIE-19P-056-2732523-00

PATIENT
  Age: 76 Year
  Sex: Male

DRUGS (5)
  1. LEUPRORELIN [Suspect]
     Active Substance: LEUPROLIDE ACETATE
     Indication: PROSTATE CANCER METASTATIC
     Dosage: 45 MILLIGRAM
     Route: 065
     Dates: start: 20170411, end: 20170418
  2. PREDNISONE. [Concomitant]
     Active Substance: PREDNISONE
     Indication: PROSTATE CANCER METASTATIC
     Dosage: 10 MILLIGRAM
     Route: 065
     Dates: start: 20170504, end: 20170814
  3. DOCETAXEL. [Suspect]
     Active Substance: DOCETAXEL
     Indication: PROSTATE CANCER METASTATIC
     Dosage: 133.95 MILLIGRAM, CYCLIC
     Route: 042
     Dates: start: 20170803, end: 20170803
  4. ABIRATERONE ACETATE. [Suspect]
     Active Substance: ABIRATERONE ACETATE
     Indication: PROSTATE CANCER METASTATIC
     Dosage: 1000 MG, UNK
     Route: 065
     Dates: start: 20170504, end: 20170822
  5. DOCETAXEL. [Suspect]
     Active Substance: DOCETAXEL
     Dosage: 133.95 MILLIGRAM, CYCLIC
     Route: 042
     Dates: start: 20170504, end: 20170504

REACTIONS (1)
  - Respiratory tract infection [Recovered/Resolved]

NARRATIVE: CASE EVENT DATE: 20170815
